FAERS Safety Report 5696592-5 (Version None)
Quarter: 2008Q2

REPORT INFORMATION
  Report Type: 
  Country: None (occurrence: None)
  Receive Date: 20080404
  Receipt Date: 20080404
  Transmission Date: 20081010
  Serious: Yes (Death)
  Sender: FDA-Public Use
  Company Number: None

PATIENT
  Sex: Male
  Weight: 88 kg

DRUGS (2)
  1. ZOLOFT [Suspect]
     Indication: DEPRESSION
     Dosage: 1 TABLET DAILY PO
     Route: 048
     Dates: start: 20080204, end: 20080308
  2. ZOLOFT [Suspect]
     Indication: PROPHYLAXIS
     Dosage: 1 TABLET DAILY PO
     Route: 048
     Dates: start: 20080204, end: 20080308

REACTIONS (4)
  - ACUTE MYELOID LEUKAEMIA [None]
  - ISCHAEMIC STROKE [None]
  - STEM CELL TRANSPLANT [None]
  - SUBDURAL HAEMATOMA [None]
